FAERS Safety Report 25289358 (Version 2)
Quarter: 2025Q2

REPORT INFORMATION
  Report Type: Spontaneous
  Country: US (occurrence: US)
  Receive Date: 20250509
  Receipt Date: 20250612
  Transmission Date: 20250716
  Serious: No
  Sender: Kenvue
  Company Number: US-KENVUE-20250500976

PATIENT
  Age: 42 Year
  Sex: Male

DRUGS (1)
  1. MENS ROGAINE EXTRA STRENGTH [Suspect]
     Active Substance: MINOXIDIL
     Indication: Alopecia
     Dosage: QUARTER SIZE, TWICE DAILY
     Route: 061
     Dates: start: 20250304, end: 2025

REACTIONS (5)
  - Alopecia [Recovering/Resolving]
  - Incorrect dose administered [Unknown]
  - Poor quality product administered [Unknown]
  - Suspected counterfeit product [Unknown]
  - Product formulation issue [Unknown]

NARRATIVE: CASE EVENT DATE: 20250304
